FAERS Safety Report 7228023-8 (Version None)
Quarter: 2011Q1

REPORT INFORMATION
  Report Type: 
  Country: None (occurrence: None)
  Receive Date: 20110112
  Receipt Date: 20110112
  Transmission Date: 20110831
  Serious: Yes (Other)
  Sender: FDA-Public Use
  Company Number: None

PATIENT
  Sex: Female
  Weight: 82.1011 kg

DRUGS (2)
  1. FEXOFENADINE HCL [Suspect]
     Indication: RHINITIS ALLERGIC
     Dosage: 180MG PO DAILY
     Route: 048
     Dates: start: 20090710, end: 20091015
  2. LORATADINE [Suspect]
     Dosage: 100 MG PO DAILY
     Route: 048
     Dates: start: 20050202, end: 20050613

REACTIONS (1)
  - DRUG INEFFECTIVE [None]
